FAERS Safety Report 9933315 (Version 1)
Quarter: 2014Q1

REPORT INFORMATION
  Report Type: Spontaneous
  Country: US (occurrence: US)
  Receive Date: 20140228
  Receipt Date: 20140228
  Transmission Date: 20141002
  Serious: No
  Sender: FDA-Public Use
  Company Number: US-MYLANLABS-2013S1004693

PATIENT
  Age: 14 Year
  Sex: Female
  Weight: 68.04 kg

DRUGS (1)
  1. AMNESTEEM CAPSULES [Suspect]
     Indication: ACNE
     Route: 048
     Dates: start: 201301

REACTIONS (2)
  - Epistaxis [Not Recovered/Not Resolved]
  - Lip dry [Not Recovered/Not Resolved]
